FAERS Safety Report 9734849 (Version 1)
Quarter: 2013Q4

REPORT INFORMATION
  Report Type: Spontaneous
  Country: US (occurrence: US)
  Receive Date: 20131206
  Receipt Date: 20131206
  Transmission Date: 20140711
  Serious: Yes (Death)
  Sender: FDA-Public Use
  Company Number: US-JNJFOC-20131202563

PATIENT
  Sex: 0

DRUGS (2)
  1. KETOCONAZOLE [Suspect]
     Indication: CUSHING^S SYNDROME
     Route: 065
  2. METYRAPONE [Suspect]
     Indication: CUSHING^S SYNDROME
     Route: 065

REACTIONS (2)
  - Cushing^s syndrome [Fatal]
  - Off label use [Unknown]
